FAERS Safety Report 15343851 (Version 2)
Quarter: 2018Q3

REPORT INFORMATION
  Report Type: Spontaneous
  Country: MX (occurrence: MX)
  Receive Date: 20180903
  Receipt Date: 20180906
  Transmission Date: 20181010
  Serious: Yes (Death, Other)
  Sender: FDA-Public Use
  Company Number: MX-GLAXOSMITHKLINE-MX2018GSK153341

PATIENT
  Age: 48 Year
  Sex: Female
  Weight: 72 kg

DRUGS (2)
  1. RELVARE [Suspect]
     Active Substance: FLUTICASONE FUROATE\VILANTEROL TRIFENATATE
     Indication: PRODUCT USED FOR UNKNOWN INDICATION
     Dosage: 1 DF (APPLICATION(S 100/25 UG), QD
     Route: 065
     Dates: start: 20180712
  2. METOPROLOL. [Concomitant]
     Active Substance: METOPROLOL
     Indication: BLOOD PRESSURE MEASUREMENT
     Dosage: UNK UNK, UNK
     Route: 065

REACTIONS (4)
  - Overdose [Recovered/Resolved]
  - Wrong technique in product usage process [Recovered/Resolved]
  - Death [Fatal]
  - Product quality issue [Recovered/Resolved]

NARRATIVE: CASE EVENT DATE: 20180818
